FAERS Safety Report 13507038 (Version 2)
Quarter: 2017Q2

REPORT INFORMATION
  Report Type: Spontaneous
  Country: US (occurrence: US)
  Receive Date: 20170503
  Receipt Date: 20170527
  Transmission Date: 20170830
  Serious: Yes (Life-Threatening, Hospitalization, Other)
  Sender: FDA-Public Use
  Company Number: US-TORRENT-00002711

PATIENT
  Age: 49 Year
  Sex: Male

DRUGS (11)
  1. GABAPENTIN. [Concomitant]
     Active Substance: GABAPENTIN
  2. PROPOFOL. [Concomitant]
     Active Substance: PROPOFOL
  3. OXYCODONE [Concomitant]
     Active Substance: OXYCODONE
  4. CLONIDINE. [Concomitant]
     Active Substance: CLONIDINE
  5. MIDAZOLAM [Concomitant]
     Active Substance: MIDAZOLAM HYDROCHLORIDE
  6. KETAMINE [Concomitant]
     Active Substance: KETAMINE
  7. QUETIAPINE. [Suspect]
     Active Substance: QUETIAPINE
  8. HYDROMORPHONE [Concomitant]
     Active Substance: HYDROMORPHONE
  9. OLANZAPINE. [Suspect]
     Active Substance: OLANZAPINE
  10. HALOPERIDOL. [Suspect]
     Active Substance: HALOPERIDOL
  11. FENTANYL. [Concomitant]
     Active Substance: FENTANYL

REACTIONS (2)
  - Neuroleptic malignant syndrome [Recovering/Resolving]
  - Electrocardiogram QT prolonged [Recovered/Resolved]
